FAERS Safety Report 13064256 (Version 2)
Quarter: 2017Q1

REPORT INFORMATION
  Report Type: Report from Study
  Country: CO (occurrence: CO)
  Receive Date: 20161227
  Receipt Date: 20170113
  Transmission Date: 20170428
  Serious: Yes (Hospitalization)
  Sender: FDA-Public Use
  Company Number: PHHY2016CO038115

PATIENT
  Age: 69 Year
  Sex: Female
  Weight: 80 kg

DRUGS (6)
  1. REVOLADE [Suspect]
     Active Substance: ELTROMBOPAG
     Dosage: UNK
     Route: 065
     Dates: start: 20160315
  2. REVOLADE [Suspect]
     Active Substance: ELTROMBOPAG
     Indication: IMMUNE THROMBOCYTOPENIC PURPURA
     Dosage: 25 MG, BID
     Route: 048
     Dates: start: 20160219, end: 20160314
  3. REVOLADE [Suspect]
     Active Substance: ELTROMBOPAG
     Dosage: 25 MG, BID
     Route: 048
     Dates: end: 20161031
  4. NIMESULIDE [Concomitant]
     Active Substance: NIMESULIDE
     Indication: PRODUCT USED FOR UNKNOWN INDICATION
     Route: 065
  5. CEPHALEXIN. [Concomitant]
     Active Substance: CEPHALEXIN
     Indication: PRODUCT USED FOR UNKNOWN INDICATION
     Dosage: 800 MG, TID
     Route: 048
  6. PREDNISOLON [Concomitant]
     Active Substance: PREDNISOLONE
     Indication: PRODUCT USED FOR UNKNOWN INDICATION
     Dosage: 0.5 DF, QD
     Route: 048

REACTIONS (25)
  - Decreased appetite [Unknown]
  - Eating disorder [Recovered/Resolved]
  - Petechiae [Unknown]
  - Gingival bleeding [Unknown]
  - Weight increased [Unknown]
  - Thrombophlebitis [Recovered/Resolved]
  - Pain [Unknown]
  - Skin lesion [Unknown]
  - Headache [Recovered/Resolved]
  - Nausea [Unknown]
  - Infarction [Unknown]
  - Ear pain [Unknown]
  - Vision blurred [Unknown]
  - Contusion [Unknown]
  - Blood cholesterol increased [Unknown]
  - Vomiting [Unknown]
  - Urinary tract infection [Unknown]
  - Thirst [Unknown]
  - Diarrhoea [Unknown]
  - Weight decreased [Unknown]
  - Insomnia [Unknown]
  - Tinnitus [Unknown]
  - Thrombosis [Unknown]
  - Influenza [Recovered/Resolved]
  - Dizziness [Unknown]

NARRATIVE: CASE EVENT DATE: 20160307
